FAERS Safety Report 25251805 (Version 3)
Quarter: 2025Q2

REPORT INFORMATION
  Report Type: Spontaneous
  Country: CN (occurrence: CN)
  Receive Date: 20250429
  Receipt Date: 20250505
  Transmission Date: 20250717
  Serious: Yes (Other)
  Sender: SANDOZ
  Company Number: CN-SANDOZ-SDZ2025CN026974

PATIENT

DRUGS (2)
  1. EZETIMIBE [Suspect]
     Active Substance: EZETIMIBE
     Indication: Hypertension
     Dosage: 10 MG, QD (10 MG/D, 10 MG/D, AND 3  MONTHS ON THE BASIS OF THE CONTROL GROUP)
     Route: 065
  2. EZETIMIBE [Suspect]
     Active Substance: EZETIMIBE
     Indication: Coronary artery disease

REACTIONS (6)
  - Hepatic function abnormal [Unknown]
  - Gastrointestinal disorder [Unknown]
  - Rash [Unknown]
  - Dizziness [Unknown]
  - Headache [Unknown]
  - Drug ineffective [Unknown]
